FAERS Safety Report 9644959 (Version 1)
Quarter: 2013Q4

REPORT INFORMATION
  Report Type: Spontaneous
  Country: US (occurrence: None)
  Receive Date: 20131023
  Receipt Date: 20131023
  Transmission Date: 20140711
  Serious: Yes (Other)
  Sender: FDA-Public Use
  Company Number: None

PATIENT
  Age: 68 Year
  Sex: Female
  Weight: 76.2 kg

DRUGS (2)
  1. REDI CAT [Suspect]
     Indication: PREMEDICATION
     Dates: start: 20131021
  2. REDI CAT [Suspect]
     Indication: COMPUTERISED TOMOGRAM
     Dates: start: 20131021

REACTIONS (3)
  - Diarrhoea [None]
  - Flatulence [None]
  - Product odour abnormal [None]
